FAERS Safety Report 5227738-0 (Version None)
Quarter: 2007Q1

REPORT INFORMATION
  Report Type: 
  Country: None (occurrence: None)
  Receive Date: 20070202
  Receipt Date: 20070124
  Transmission Date: 20070707
  Serious: Yes (Other)
  Sender: FDA-Public Use
  Company Number: NL-PFIZER INC-2007007985

PATIENT
  Weight: 84 kg

DRUGS (6)
  1. LIPITOR [Suspect]
     Indication: DRUG USE FOR UNKNOWN INDICATION
     Route: 048
  2. VIAGRA [Concomitant]
  3. XANAX [Concomitant]
  4. TILDIEM [Concomitant]
     Route: 048
  5. ISOTEN [Concomitant]
  6. CARDIOASPIRINE [Concomitant]

REACTIONS (2)
  - MYOCARDIAL INFARCTION [None]
  - OSTEONECROSIS [None]
